FAERS Safety Report 9586626 (Version 2)
Quarter: 2013Q4

REPORT INFORMATION
  Report Type: Spontaneous
  Country: JP (occurrence: JP)
  Receive Date: 20131003
  Receipt Date: 20131003
  Transmission Date: 20140711
  Serious: Yes (Hospitalization, Other)
  Sender: FDA-Public Use
  Company Number: JP-ABBVIE-13X-087-1128639-00

PATIENT
  Age: 41 Year
  Sex: Female

DRUGS (7)
  1. CLARITH [Suspect]
     Indication: PSEUDOMONAS INFECTION
  2. STEROID [Suspect]
     Indication: IMMUNOSUPPRESSION
  3. CICLOSPORIN [Suspect]
     Indication: IMMUNOSUPPRESSION
  4. MYCOPHENOLATE MOFETIL [Suspect]
     Indication: IMMUNOSUPPRESSION
  5. MYCOPHENOLATE MOFETIL [Suspect]
  6. GANCICLOVIR [Suspect]
     Indication: CYTOMEGALOVIRUS TEST POSITIVE
     Route: 041
  7. AZATHIOPRINE [Suspect]
     Indication: IMMUNOSUPPRESSION

REACTIONS (2)
  - Anaemia [Recovering/Resolving]
  - Pancytopenia [Recovering/Resolving]
